FAERS Safety Report 6044940-9 (Version None)
Quarter: 2009Q1

REPORT INFORMATION
  Report Type: 
  Country: None (occurrence: None)
  Receive Date: 20090116
  Receipt Date: 20090116
  Transmission Date: 20090719
  Serious: No
  Sender: FDA-Public Use
  Company Number: None

PATIENT
  Sex: Female
  Weight: 55.3388 kg

DRUGS (2)
  1. XANAX [Suspect]
     Indication: ANXIETY
     Dosage: 1 MG TID PO 1-2 MONTH 2005
     Route: 048
     Dates: start: 20050101
  2. XANAX [Suspect]
     Indication: HYPOMANIA
     Dosage: 1 MG TID PO 1-2 MONTH 2005
     Route: 048
     Dates: start: 20050101

REACTIONS (4)
  - NAUSEA [None]
  - PRODUCT QUALITY ISSUE [None]
  - SWELLING [None]
  - VISION BLURRED [None]
